FAERS Safety Report 5549610-9 (Version None)
Quarter: 2007Q4

REPORT INFORMATION
  Report Type: 
  Country: None (occurrence: None)
  Receive Date: 20071210
  Receipt Date: 20071204
  Transmission Date: 20080405
  Serious: Yes (Hospitalization)
  Sender: FDA-Public Use
  Company Number: CLOF-10668

PATIENT
  Sex: Male
  Weight: 69.4003 kg

DRUGS (1)
  1. CLOFARABINE. MFR: GENZYME [Suspect]
     Indication: ACUTE MYELOID LEUKAEMIA
     Dates: start: 20070907, end: 20070911

REACTIONS (8)
  - ACUTE RESPIRATORY DISTRESS SYNDROME [None]
  - INFECTION [None]
  - INTRACRANIAL HAEMATOMA [None]
  - LEFT VENTRICULAR DYSFUNCTION [None]
  - PLATELET COUNT ABNORMAL [None]
  - POST PROCEDURAL HAEMORRHAGE [None]
  - PULMONARY HYPERTENSION [None]
  - TRICUSPID VALVE INCOMPETENCE [None]
